FAERS Safety Report 10273614 (Version 1)
Quarter: 2014Q3

REPORT INFORMATION
  Report Type: Spontaneous
  Country: US (occurrence: US)
  Receive Date: 20140702
  Receipt Date: 20140702
  Transmission Date: 20150326
  Serious: No
  Sender: FDA-Public Use
  Company Number: US-009507513-1407USA001046

PATIENT
  Age: 72 Year
  Sex: Female

DRUGS (1)
  1. ASMANEX [Suspect]
     Active Substance: MOMETASONE FUROATE
     Indication: CHRONIC OBSTRUCTIVE PULMONARY DISEASE
     Dosage: ONE PUFF IN THE MORNING AND ONE AT NIGHT
     Route: 055

REACTIONS (6)
  - Product lot number issue [Unknown]
  - Drug administration error [Unknown]
  - Fall [Recovering/Resolving]
  - Product quality issue [Unknown]
  - Nervousness [Unknown]
  - Mood altered [Unknown]

NARRATIVE: CASE EVENT DATE: 20140624
